FAERS Safety Report 24111365 (Version 4)
Quarter: 2024Q4

REPORT INFORMATION
  Report Type: Spontaneous
  Country: AU (occurrence: AU)
  Receive Date: 20240718
  Receipt Date: 20241128
  Transmission Date: 20250114
  Serious: Yes (Life-Threatening, Hospitalization, Other)
  Sender: MERCK
  Company Number: AU-009507513-2407USA008925

PATIENT
  Age: 89 Year
  Sex: Male
  Weight: 71.5 kg

DRUGS (11)
  1. PEMBROLIZUMAB [Suspect]
     Active Substance: PEMBROLIZUMAB
     Indication: Non-small cell lung cancer
     Dosage: 200 MILLIGRAM, CYCLICAL
     Route: 042
     Dates: start: 20240606, end: 20240606
  2. OLOMORASIB [Suspect]
     Active Substance: OLOMORASIB
     Indication: Non-small cell lung cancer
     Dosage: 50 MILLIGRAM, BID
     Route: 048
     Dates: start: 20240606, end: 20240621
  3. OLOMORASIB [Suspect]
     Active Substance: OLOMORASIB
     Dosage: UNK
     Route: 048
     Dates: start: 20240808
  4. LIPITOR [Concomitant]
     Active Substance: ATORVASTATIN CALCIUM
     Indication: Blood cholesterol
     Dosage: UNK
     Dates: start: 200605
  5. INSULIN ASPART [Concomitant]
     Active Substance: INSULIN ASPART
     Indication: Diabetes mellitus
     Dosage: UNK
     Dates: start: 2017, end: 20240623
  6. MD EYES [Concomitant]
     Indication: Macular degeneration
     Dosage: UNK
     Dates: start: 201006
  7. AMPICILLIN [Concomitant]
     Active Substance: AMPICILLIN
     Indication: Prostatitis
     Dosage: UNK
     Dates: start: 20240528
  8. ACETAMINOPHEN [Concomitant]
     Active Substance: ACETAMINOPHEN
     Indication: Prostatitis
     Dosage: UNK
     Dates: start: 20240529
  9. FLUCLOXACILLIN [Concomitant]
     Active Substance: FLUCLOXACILLIN
     Dosage: UNK; INDICATION: PROPHYLAXIS
     Dates: start: 20240623, end: 20240623
  10. GENTAMICIN [Concomitant]
     Active Substance: GENTAMICIN
     Dosage: UNK; INDICATION: PROPHYLAXIS
     Dates: start: 20240623, end: 20240623
  11. ONDANSETRON [Concomitant]
     Active Substance: ONDANSETRON
     Indication: Nausea
     Dosage: UNK
     Dates: start: 20240623, end: 20240623

REACTIONS (7)
  - Diabetic ketoacidosis [Recovered/Resolved]
  - Sepsis [Unknown]
  - Electrocardiogram QT prolonged [Unknown]
  - Diabetic ketosis [Recovered/Resolved]
  - Contrast media reaction [Recovered/Resolved]
  - QRS axis abnormal [Unknown]
  - Endocrine disorder [Unknown]

NARRATIVE: CASE EVENT DATE: 20240601
